FAERS Safety Report 12058875 (Version 1)
Quarter: 2016Q1

REPORT INFORMATION
  Report Type: Report from Study
  Country: US (occurrence: US)
  Receive Date: 20160209
  Receipt Date: 20160209
  Transmission Date: 20160526
  Serious: No
  Sender: FDA-Public Use
  Company Number: US-ABBVIE-15P-163-1499373-00

PATIENT
  Age: 56 Year
  Sex: Female

DRUGS (9)
  1. HUMIRA [Suspect]
     Active Substance: ADALIMUMAB
     Indication: CROHN^S DISEASE
     Dosage: FOUR PENS ON DAY 1
     Route: 058
  2. QUESTRAN [Concomitant]
     Active Substance: CHOLESTYRAMINE
     Indication: CROHN^S DISEASE
  3. FISH OIL [Concomitant]
     Active Substance: FISH OIL
     Indication: CROHN^S DISEASE
  4. CALCIUM/VITAMIN D [Concomitant]
     Active Substance: CALCIUM\VITAMIN D
     Indication: CROHN^S DISEASE
  5. MULTIVITAMIN [Concomitant]
     Active Substance: VITAMINS
     Indication: CROHN^S DISEASE
  6. VITAMIN B12 [Concomitant]
     Active Substance: CYANOCOBALAMIN
     Indication: CROHN^S DISEASE
  7. CONJUGATED ESTROGENS [Concomitant]
     Active Substance: ESTROGENS, CONJUGATED
     Indication: CROHN^S DISEASE
  8. RANITIDINE HCL [Concomitant]
     Active Substance: RANITIDINE HYDROCHLORIDE
     Indication: CROHN^S DISEASE
  9. HUMIRA [Suspect]
     Active Substance: ADALIMUMAB
     Dosage: TWO PENS ON DAY 15
     Route: 058

REACTIONS (5)
  - Increased appetite [Unknown]
  - Mood altered [Unknown]
  - Foot fracture [Recovered/Resolved]
  - Diarrhoea [Recovering/Resolving]
  - Photosensitivity reaction [Unknown]
